FAERS Safety Report 5307681-9 (Version None)
Quarter: 2007Q2

REPORT INFORMATION
  Report Type: 
  Country: None (occurrence: None)
  Receive Date: 20070425
  Receipt Date: 20070315
  Transmission Date: 20071010
  Serious: Yes (Other)
  Sender: FDA-Public Use
  Company Number: US-PFIZER INC-2007008943

PATIENT
  Sex: Female
  Weight: 73 kg

DRUGS (5)
  1. CHANTIX [Suspect]
     Indication: SMOKING CESSATION THERAPY
     Dates: start: 20070109, end: 20070129
  2. SPIRIVA [Concomitant]
  3. MONTELUKAST SODIUM [Concomitant]
     Dosage: DAILY DOSE:10MG
  4. ZYRTEC [Concomitant]
     Dosage: DAILY DOSE:10MG
  5. ADVAIR DISKUS 100/50 [Concomitant]
     Dosage: TEXT:250/50

REACTIONS (3)
  - PRURITUS [None]
  - RASH [None]
  - RASH MACULAR [None]
